FAERS Safety Report 7167058-0 (Version None)
Quarter: 2010Q4

REPORT INFORMATION
  Report Type: 
  Country: None (occurrence: None)
  Receive Date: 20101216
  Receipt Date: 20101206
  Transmission Date: 20110411
  Serious: Yes (Hospitalization)
  Sender: FDA-Public Use
  Company Number: Z0006422A

PATIENT
  Sex: Male
  Weight: 69 kg

DRUGS (2)
  1. OFATUMUMAB [Suspect]
     Indication: CHRONIC LYMPHOCYTIC LEUKAEMIA
     Route: 042
     Dates: start: 20100512
  2. CHLORAMBUCIL [Suspect]
     Indication: CHRONIC LYMPHOCYTIC LEUKAEMIA
     Route: 048
     Dates: start: 20100512

REACTIONS (7)
  - BALANCE DISORDER [None]
  - DEAFNESS UNILATERAL [None]
  - EAR INFECTION [None]
  - FACIAL PARESIS [None]
  - HERPES ZOSTER OPHTHALMIC [None]
  - PYREXIA [None]
  - VERTIGO [None]
